FAERS Safety Report 10943688 (Version 2)
Quarter: 2015Q2

REPORT INFORMATION
  Report Type: Spontaneous
  Country: US (occurrence: US)
  Receive Date: 20150322
  Receipt Date: 20150526
  Transmission Date: 20150821
  Serious: No
  Sender: FDA-Public Use
  Company Number: US-JNJFOC-20130512295

PATIENT
  Sex: Female

DRUGS (1)
  1. RISPERIDONE. [Suspect]
     Active Substance: RISPERIDONE
     Indication: AUTISM
     Dosage: HIGH-DOSE: 1.25 MG/DAY [20 TO {45 KG], 1.75 MG/DAY [}45 KG])
     Route: 048

REACTIONS (1)
  - Oligomenorrhoea [Unknown]
